FAERS Safety Report 8495488-3 (Version None)
Quarter: 2012Q3

REPORT INFORMATION
  Report Type: 
  Country: None (occurrence: None)
  Receive Date: 20120709
  Receipt Date: 20120628
  Transmission Date: 20120928
  Serious: Yes (Hospitalization)
  Sender: FDA-Public Use
  Company Number: AU-ACTELION-A-CH2012-68115

PATIENT
  Age: 63 Year
  Sex: Male

DRUGS (8)
  1. DIGOXIN [Concomitant]
  2. IRBESARTAN [Concomitant]
  3. SPIRONOLACTONE [Concomitant]
  4. TRACLEER [Suspect]
     Indication: PULMONARY HYPERTENSION
     Dosage: 125 MG, BID
     Route: 048
     Dates: start: 20101201
  5. SILDENAFIL [Concomitant]
  6. FUROSEMIDE [Concomitant]
  7. SOTALOL HCL [Concomitant]
  8. WARFARIN SODIUM [Concomitant]

REACTIONS (8)
  - RIGHT VENTRICULAR FAILURE [None]
  - JUGULAR VEIN DISTENSION [None]
  - RENAL FAILURE ACUTE [None]
  - ASCITES [None]
  - ASTHMA [None]
  - OEDEMA PERIPHERAL [None]
  - EXERCISE TOLERANCE DECREASED [None]
  - HEPATOMEGALY [None]
